FAERS Safety Report 5524695-4 (Version None)
Quarter: 2007Q4

REPORT INFORMATION
  Report Type: 
  Country: None (occurrence: None)
  Receive Date: 20071123
  Receipt Date: 20071114
  Transmission Date: 20080405
  Serious: Yes (Other)
  Sender: FDA-Public Use
  Company Number: GB-PFIZER INC-2007096714

PATIENT
  Age: 19 Year
  Sex: Female
  Weight: 60 kg

DRUGS (3)
  1. DOXYCYCLINE [Suspect]
     Route: 048
  2. AMOXICILLIN [Concomitant]
     Route: 048
  3. METRONIDAZOLE [Concomitant]
     Route: 048

REACTIONS (3)
  - HEADACHE [None]
  - INTRACRANIAL PRESSURE INCREASED [None]
  - VITH NERVE PARALYSIS [None]
